FAERS Safety Report 8625102-5 (Version None)
Quarter: 2012Q3

REPORT INFORMATION
  Report Type: 
  Country: None (occurrence: None)
  Receive Date: 20120827
  Receipt Date: 20120821
  Transmission Date: 20120928
  Serious: Yes (Hospitalization)
  Sender: FDA-Public Use
  Company Number: US-GLAXOSMITHKLINE-A0990443A

PATIENT
  Age: 41 Year
  Sex: Female

DRUGS (3)
  1. MIRTAZAPINE [Concomitant]
  2. LAMOTRIGINE [Suspect]
     Indication: AFFECTIVE DISORDER
     Dosage: 150MG TWICE PER DAY
     Route: 048
     Dates: end: 20120817
  3. CLONAZEPAM [Concomitant]

REACTIONS (1)
  - OVERDOSE [None]
